FAERS Safety Report 10252772 (Version 2)
Quarter: 2014Q2

REPORT INFORMATION
  Report Type: Spontaneous
  Country: US (occurrence: US)
  Receive Date: 20140623
  Receipt Date: 20140623
  Transmission Date: 20141212
  Serious: No
  Sender: FDA-Public Use
  Company Number: US-ASTRAZENECA-2013SE65392

PATIENT
  Age: 63 Year
  Sex: Female
  Weight: 68 kg

DRUGS (4)
  1. SYMBICORT  PMDI [Suspect]
     Indication: EMPHYSEMA
     Dosage: UNKNOWN
     Route: 055
     Dates: start: 2013, end: 2013
  2. SYMBICORT  PMDI [Suspect]
     Indication: BRONCHITIS
     Dosage: UNKNOWN
     Route: 055
     Dates: start: 2013, end: 2013
  3. SYMBICORT  PMDI [Suspect]
     Indication: EMPHYSEMA
     Dosage: 160/4.5 MCG, 2 PUFFS DAILY
     Route: 055
     Dates: start: 2012
  4. SYMBICORT  PMDI [Suspect]
     Indication: BRONCHITIS
     Dosage: 160/4.5 MCG, 2 PUFFS DAILY
     Route: 055
     Dates: start: 2012

REACTIONS (3)
  - Wheezing [Unknown]
  - Intentional product misuse [Unknown]
  - Drug dose omission [Unknown]
